FAERS Safety Report 5906142-3 (Version None)
Quarter: 2008Q4

REPORT INFORMATION
  Report Type: 
  Country: None (occurrence: None)
  Receive Date: 20081002
  Receipt Date: 20080925
  Transmission Date: 20090506
  Serious: Yes (Other)
  Sender: FDA-Public Use
  Company Number: PHHY2008JP21188

PATIENT
  Age: 69 Year
  Sex: Male

DRUGS (5)
  1. VOLTAREN [Suspect]
     Indication: MUSCULOSKELETAL PAIN
     Dosage: 75 MG, QD
     Route: 048
     Dates: end: 20080910
  2. VOLTAREN [Suspect]
     Dosage: 25 MG, QD
     Route: 054
     Dates: end: 20080910
  3. LOXONIN [Concomitant]
     Dosage: 120 MG/DAY
     Route: 048
  4. CYANOCOBALAMIN [Concomitant]
     Dosage: 1500?G
     Route: 048
  5. PRAVASTATIN SODIUM [Concomitant]
     Dosage: 10MG
     Route: 048

REACTIONS (3)
  - BLOOD PRESSURE DECREASED [None]
  - DIZZINESS [None]
  - DIZZINESS POSTURAL [None]
